FAERS Safety Report 4421958-0 (Version None)
Quarter: 2004Q3

REPORT INFORMATION
  Report Type: 
  Country: None (occurrence: None)
  Receive Date: 20040709
  Receipt Date: 20030630
  Transmission Date: 20050211
  Serious: Yes (Other)
  Sender: FDA-Public Use
  Company Number: USA-2002-002117

PATIENT
  Age: 66 Year
  Sex: Female

DRUGS (1)
  1. ULTRAVIST 300 [Suspect]
     Indication: UROGRAPHY
     Dosage: 1 DOSE, INTRAVENOUS
     Route: 042
     Dates: start: 20020801, end: 20020801

REACTIONS (4)
  - ANAPHYLACTOID REACTION [None]
  - DYSPNOEA [None]
  - RASH [None]
  - SWELLING [None]
